FAERS Safety Report 8469834-0 (Version None)
Quarter: 2012Q2

REPORT INFORMATION
  Report Type: 
  Country: None (occurrence: None)
  Receive Date: 20120626
  Receipt Date: 20120618
  Transmission Date: 20120825
  Serious: Yes (Hospitalization)
  Sender: FDA-Public Use
  Company Number: GB-ABBOTT-12P-167-0947270-00

PATIENT
  Age: 49 Year
  Sex: Male

DRUGS (2)
  1. VITAMIN B12 NOS [Suspect]
     Indication: PRODUCT USED FOR UNKNOWN INDICATION
     Dosage: INJECTION FOR INFUSION
  2. HUMIRA [Suspect]
     Indication: PSORIASIS
     Route: 058

REACTIONS (2)
  - ANAPHYLACTOID REACTION [None]
  - CEREBROVASCULAR ACCIDENT [None]
